FAERS Safety Report 25100593 (Version 1)
Quarter: 2025Q1

REPORT INFORMATION
  Report Type: Report from Study
  Country: US (occurrence: US)
  Receive Date: 20250320
  Receipt Date: 20250320
  Transmission Date: 20250409
  Serious: Yes (Hospitalization)
  Sender: EISAI
  Company Number: US-Eisai-EC-2025-186078

PATIENT
  Age: 71 Year
  Sex: Female

DRUGS (2)
  1. LENVIMA [Suspect]
     Active Substance: LENVATINIB
     Indication: Uterine cancer
     Dates: start: 20241216
  2. LENVIMA [Suspect]
     Active Substance: LENVATINIB
     Dates: end: 202502

REACTIONS (6)
  - Dehydration [Unknown]
  - Cholecystitis [Unknown]
  - Fluid intake reduced [Unknown]
  - Decreased appetite [Unknown]
  - Weight decreased [Unknown]
  - Malignant neoplasm progression [Unknown]

NARRATIVE: CASE EVENT DATE: 20250101
